FAERS Safety Report 9797845 (Version 2)
Quarter: 2014Q1

REPORT INFORMATION
  Report Type: Spontaneous
  Country: FR (occurrence: FR)
  Receive Date: 20140106
  Receipt Date: 20140331
  Transmission Date: 20141002
  Serious: Yes (Death, Other)
  Sender: FDA-Public Use
  Company Number: FR-ELI_LILLY_AND_COMPANY-FR201312009126

PATIENT
  Age: 39 Year
  Sex: Female

DRUGS (7)
  1. CYMBALTA [Suspect]
     Indication: PRODUCT USED FOR UNKNOWN INDICATION
     Dosage: 30 MG, QD
     Route: 048
     Dates: start: 20131108
  2. LAMICTAL [Suspect]
     Indication: EPILEPSY
     Dosage: 25 MG, QD
     Route: 048
     Dates: start: 20131108
  3. NOCTAMIDE [Suspect]
     Indication: PRODUCT USED FOR UNKNOWN INDICATION
     Dosage: 2 MG, QD
     Route: 048
  4. ALPRAZOLAM [Suspect]
     Indication: PRODUCT USED FOR UNKNOWN INDICATION
     Dosage: UNK UNK, TID
     Route: 048
  5. TERCIAN                            /00759301/ [Suspect]
     Indication: PRODUCT USED FOR UNKNOWN INDICATION
     Dosage: UNK UNK, EACH EVENING
     Route: 048
  6. MONO TILDIEM [Suspect]
     Indication: HYPERTENSION
     Dosage: 200 MG, QD
     Route: 048
  7. DEPAMIDE [Concomitant]
     Indication: AFFECTIVE DISORDER
     Dosage: 300 MG, QD
     Route: 065
     Dates: start: 201201, end: 20131108

REACTIONS (2)
  - Death [Fatal]
  - Dizziness [Not Recovered/Not Resolved]
